FAERS Safety Report 7878322-1 (Version None)
Quarter: 2011Q4

REPORT INFORMATION
  Report Type: 
  Country: None (occurrence: None)
  Receive Date: 20111101
  Receipt Date: 20111020
  Transmission Date: 20120403
  Serious: Yes (Life-Threatening, Hospitalization)
  Sender: FDA-Public Use
  Company Number: FR-BRISTOL-MYERS SQUIBB COMPANY-16192999

PATIENT
  Age: 53 Year
  Sex: Female

DRUGS (16)
  1. GLUCOPHAGE [Suspect]
     Indication: TYPE 2 DIABETES MELLITUS
     Route: 048
     Dates: end: 20110513
  2. LERCANIDIPINE [Concomitant]
  3. FLUOXETINE HCL [Concomitant]
  4. OMEPRAZOLE [Concomitant]
  5. ATARAX [Concomitant]
  6. DELURSAN [Concomitant]
  7. VOLTAREN [Concomitant]
  8. ALDALIX [Concomitant]
  9. STABLON [Concomitant]
  10. STRESAM [Concomitant]
  11. PANOS [Concomitant]
  12. ACETAMINOPHEN [Concomitant]
  13. NOCTAMIDE [Concomitant]
  14. PROPRANOLOL [Suspect]
     Indication: HYPERTENSION
     Dosage: 160MG PROLONGED RELEASE CAPS
     Route: 048
  15. GLYBURIDE [Suspect]
     Indication: TYPE 2 DIABETES MELLITUS
     Route: 048
     Dates: end: 20110513
  16. ASPIRIN [Concomitant]

REACTIONS (2)
  - COMA [None]
  - HYPOGLYCAEMIA [None]
